FAERS Safety Report 8198238-3 (Version None)
Quarter: 2012Q1

REPORT INFORMATION
  Report Type: 
  Country: None (occurrence: None)
  Receive Date: 20120309
  Receipt Date: 20120307
  Transmission Date: 20120608
  Serious: Yes (Hospitalization, Other)
  Sender: FDA-Public Use
  Company Number: FR-MERCK-1201FRA00104

PATIENT
  Age: 70 Year
  Sex: Female

DRUGS (11)
  1. FOSAMAX [Suspect]
     Indication: OSTEOPOROSIS
     Route: 048
     Dates: start: 20010101, end: 20111216
  2. BROMAZEPAM [Concomitant]
     Route: 065
  3. CLOPIDOGREL BISULFATE [Concomitant]
     Indication: ARTERIAL DISORDER
     Route: 065
  4. NAFRONYL OXALATE [Concomitant]
     Route: 065
  5. ESOMEPRAZOLE MAGNESIUM [Concomitant]
     Route: 065
  6. ROSUVASTATIN CALCIUM [Concomitant]
     Route: 065
  7. URSODIOL [Concomitant]
     Route: 065
  8. ACETAMINOPHEN AND CODEINE PHOSPHATE [Concomitant]
     Route: 065
  9. CALCIUM CARBONATE [Concomitant]
     Route: 065
  10. FOSFOMYCIN TROMETHAMINE [Concomitant]
     Route: 065
  11. DILTIAZEM HYDROCHLORIDE [Concomitant]
     Route: 065

REACTIONS (2)
  - TIBIA FRACTURE [None]
  - FEMUR FRACTURE [None]
